FAERS Safety Report 11384663 (Version 1)
Quarter: 2015Q3

REPORT INFORMATION
  Report Type: Spontaneous
  Country: US (occurrence: US)
  Receive Date: 20150811
  Receipt Date: 20150811
  Transmission Date: 20151125
  Serious: No
  Sender: FDA-Public Use
  Company Number: US-ELI_LILLY_AND_COMPANY-US201103001618

PATIENT
  Age: 59 Year
  Sex: Male
  Weight: 83.9 kg

DRUGS (3)
  1. NIACIN. [Concomitant]
     Active Substance: NIACIN
     Dosage: 1000 MG, QD
  2. CIALIS [Suspect]
     Active Substance: TADALAFIL
     Indication: PROMOTION OF WOUND HEALING
     Dosage: UNK, DAILY (1/D)
     Dates: start: 20110225, end: 20110228
  3. BABY ASPIRIN [Concomitant]
     Active Substance: ASPIRIN
     Dosage: UNK, QD

REACTIONS (6)
  - Off label use [Recovered/Resolved]
  - Back pain [Recovered/Resolved]
  - Arthritis [Recovered/Resolved]
  - Wrong technique in product usage process [Recovered/Resolved]
  - Pain in extremity [Recovered/Resolved]
  - Insomnia [Recovered/Resolved]
